FAERS Safety Report 12516105 (Version 1)
Quarter: 2016Q2

REPORT INFORMATION
  Report Type: Report from Study
  Country: GB (occurrence: GB)
  Receive Date: 20160630
  Receipt Date: 20160630
  Transmission Date: 20160815
  Serious: Yes (Hospitalization)
  Sender: FDA-Public Use
  Company Number: GB-JNJFOC-20160620583

PATIENT
  Age: 37 Year
  Sex: Female
  Weight: 62.3 kg

DRUGS (8)
  1. STELARA [Suspect]
     Active Substance: USTEKINUMAB
     Indication: PSORIASIS
     Route: 058
     Dates: start: 20100120, end: 20100808
  2. FERROUS FUMARATE [Concomitant]
     Active Substance: FERROUS FUMARATE
     Route: 065
     Dates: start: 20111101
  3. COCOIS [Concomitant]
     Route: 065
     Dates: start: 20111201
  4. STELARA [Suspect]
     Active Substance: USTEKINUMAB
     Indication: PSORIASIS
     Route: 058
     Dates: start: 20130107, end: 20141010
  5. DOVOBET [Concomitant]
     Active Substance: BETAMETHASONE\CALCIPOTRIENE
     Route: 065
     Dates: start: 20111101
  6. CICLOSPORIN [Concomitant]
     Active Substance: CYCLOSPORINE
     Route: 065
     Dates: start: 20150129
  7. ASPIRIN. [Concomitant]
     Active Substance: ASPIRIN
     Route: 065
     Dates: start: 20151102, end: 20160326
  8. FOLIC ACID. [Concomitant]
     Active Substance: FOLIC ACID
     Route: 065
     Dates: start: 20100804

REACTIONS (2)
  - Maternal exposure before pregnancy [Recovered/Resolved]
  - Premature labour [Recovered/Resolved]

NARRATIVE: CASE EVENT DATE: 20150829
